FAERS Safety Report 13905898 (Version 2)
Quarter: 2017Q4

REPORT INFORMATION
  Report Type: Spontaneous
  Country: US (occurrence: US)
  Receive Date: 20170825
  Receipt Date: 20171006
  Transmission Date: 20180320
  Serious: Yes (Other)
  Sender: FDA-Public Use
  Company Number: US-GLAXOSMITHKLINE-US2017131148

PATIENT
  Age: 80 Year
  Sex: Female

DRUGS (2)
  1. PROAIR HFA [Concomitant]
     Active Substance: ALBUTEROL SULFATE
  2. FLOVENT DISKUS [Suspect]
     Active Substance: FLUTICASONE PROPIONATE
     Indication: ASTHMA
     Dosage: 1 PUFF(S), BID
     Route: 055
     Dates: start: 201608

REACTIONS (4)
  - Glaucoma [Unknown]
  - Drug ineffective [Not Recovered/Not Resolved]
  - Procedural complication [Unknown]
  - Cataract operation [Unknown]

NARRATIVE: CASE EVENT DATE: 201608
